FAERS Safety Report 21252455 (Version 1)
Quarter: 2022Q3

REPORT INFORMATION
  Report Type: Report from Study
  Country: CO (occurrence: CO)
  Receive Date: 20220825
  Receipt Date: 20220825
  Transmission Date: 20221027
  Serious: Yes (Hospitalization, Other)
  Sender: FDA-Public Use
  Company Number: CO-ASTELLAS-2022US029893

PATIENT
  Age: 31 Year
  Sex: Female
  Weight: 42 kg

DRUGS (1)
  1. TACROLIMUS [Suspect]
     Active Substance: TACROLIMUS
     Indication: Renal transplant
     Dosage: 7 MG, ONCE DAILY (2MG + 5MG)
     Route: 048
     Dates: start: 20170124

REACTIONS (5)
  - Toxicity to various agents [Recovered/Resolved]
  - Escherichia infection [Recovered/Resolved]
  - Blood urea increased [Recovered/Resolved]
  - Cytomegalovirus viraemia [Recovered/Resolved]
  - Renal failure [Recovered/Resolved]

NARRATIVE: CASE EVENT DATE: 20220509
